FAERS Safety Report 19536716 (Version 3)
Quarter: 2021Q3

REPORT INFORMATION
  Report Type: Spontaneous
  Country: DE (occurrence: DE)
  Receive Date: 20210713
  Receipt Date: 20210721
  Transmission Date: 20211014
  Serious: Yes (Life-Threatening, Other)
  Sender: FDA-Public Use
  Company Number: NVSC2021DE155667

PATIENT
  Age: 66 Year
  Sex: Male

DRUGS (11)
  1. NACL [Concomitant]
     Active Substance: SODIUM CHLORIDE
     Indication: PRODUCT USED FOR UNKNOWN INDICATION
     Dosage: 260 ML (260ML)
     Route: 065
  2. CASPOFUNGIN [Concomitant]
     Active Substance: CASPOFUNGIN
     Indication: PRODUCT USED FOR UNKNOWN INDICATION
     Dosage: UNK (50MG/250ML)
     Route: 065
  3. NACL [Concomitant]
     Active Substance: SODIUM CHLORIDE
     Dosage: 8.4 ML/H (168MG/H)
     Route: 065
  4. MIDOSTAURIN [Suspect]
     Active Substance: MIDOSTAURIN
     Indication: PRODUCT USED FOR UNKNOWN INDICATION
     Dosage: 100 MG (TOTAL DAILY DOSE)
     Route: 065
     Dates: start: 20210705, end: 20210708
  5. NORADRENALIN [Concomitant]
     Active Substance: NOREPINEPHRINE\NOREPINEPHRINE BITARTRATE
     Indication: PRODUCT USED FOR UNKNOWN INDICATION
     Dosage: 10 MG/50ML (2,5 ML/H (0,5MG/H))
     Route: 065
  6. VANCOMYCIN [Concomitant]
     Active Substance: VANCOMYCIN
     Indication: PRODUCT USED FOR UNKNOWN INDICATION
     Dosage: 1000MG/50ML
     Route: 065
  7. DAUNORUBICIN [Suspect]
     Active Substance: DAUNORUBICIN
     Indication: ACUTE MYELOID LEUKAEMIA
     Dosage: 126 MG (TOTAL DAILY DOSE)
     Route: 065
     Dates: start: 20210628
  8. CIPROFLOXACIN. [Concomitant]
     Active Substance: CIPROFLOXACIN
     Indication: PRODUCT USED FOR UNKNOWN INDICATION
     Dosage: UNK (400MG/200ML)
     Route: 065
  9. MEROPENEM. [Concomitant]
     Active Substance: MEROPENEM
     Indication: PRODUCT USED FOR UNKNOWN INDICATION
     Dosage: UNK ((2000MG/100ML NACL0,9% ) (33,333ML/H (666,667 MG/H))
     Route: 065
  10. CYTARABINE. [Suspect]
     Active Substance: CYTARABINE
     Indication: PRODUCT USED FOR UNKNOWN INDICATION
     Dosage: 420 MG (TOTAL DAILY DOSE)
     Route: 065
     Dates: start: 20210628
  11. NACL [Concomitant]
     Active Substance: SODIUM CHLORIDE
     Dosage: 4.2ML/H (84MG/H)
     Route: 065

REACTIONS (6)
  - Neutropenia [Unknown]
  - C-reactive protein increased [Recovered/Resolved]
  - Procalcitonin increased [Recovered/Resolved]
  - White blood cell count abnormal [Unknown]
  - Pneumonia klebsiella [Unknown]
  - Septic shock [Recovered/Resolved]

NARRATIVE: CASE EVENT DATE: 20210708
